FAERS Safety Report 9499049 (Version 1)
Quarter: 2013Q3

REPORT INFORMATION
  Report Type: Spontaneous
  Country: IE (occurrence: IE)
  Receive Date: 20130904
  Receipt Date: 20130904
  Transmission Date: 20140515
  Serious: Yes (Other)
  Sender: FDA-Public Use
  Company Number: IE-WATSON-2013-15961

PATIENT
  Sex: Female

DRUGS (6)
  1. FLUCLOXACILLIN (UNKNOWN) [Suspect]
     Indication: CELLULITIS
     Dosage: 2 G, QID
     Route: 042
     Dates: start: 20130415, end: 20130423
  2. CLINDAMYCIN [Suspect]
     Indication: CELLULITIS
     Dosage: 450 MG, QID
     Route: 048
     Dates: start: 20130415, end: 20130423
  3. BENZYLPENICILLIN [Suspect]
     Indication: CELLULITIS
     Dosage: 2.4 G, QID
     Route: 042
     Dates: start: 20130415, end: 20130423
  4. DIFENE [Concomitant]
  5. PARACETAMOL [Concomitant]
  6. ESOMEPRAZOLE [Concomitant]

REACTIONS (5)
  - Diarrhoea [Recovered/Resolved]
  - Nausea [Recovered/Resolved]
  - Urticaria [Recovered/Resolved]
  - Catheter site related reaction [Recovered/Resolved]
  - Influenza like illness [Recovered/Resolved]
